FAERS Safety Report 7610255-8 (Version None)
Quarter: 2011Q3

REPORT INFORMATION
  Report Type: 
  Country: None (occurrence: None)
  Receive Date: 20110713
  Receipt Date: 20110713
  Transmission Date: 20111222
  Serious: Yes (Hospitalization, Other)
  Sender: FDA-Public Use
  Company Number: None

PATIENT
  Sex: Female
  Weight: 54.4316 kg

DRUGS (1)
  1. PRADAXA [Suspect]
     Indication: ANTICOAGULANT THERAPY
     Dosage: 150 MG 2X DAILY 2X DAILY BY MOUTH
     Route: 048
     Dates: start: 20110301, end: 20110620

REACTIONS (3)
  - FLATULENCE [None]
  - ULCER [None]
  - BACK PAIN [None]
